APPROVED DRUG PRODUCT: TRIMIPRAMINE MALEATE
Active Ingredient: TRIMIPRAMINE MALEATE
Strength: EQ 50MG BASE
Dosage Form/Route: CAPSULE;ORAL
Application: A208127 | Product #002 | TE Code: AB
Applicant: BRECKENRIDGE PHARMACEUTICAL INC
Approved: Apr 15, 2016 | RLD: No | RS: Yes | Type: RX